FAERS Safety Report 7124301-1 (Version None)
Quarter: 2010Q4

REPORT INFORMATION
  Report Type: 
  Country: None (occurrence: None)
  Receive Date: 20101126
  Receipt Date: 20101116
  Transmission Date: 20110411
  Serious: Yes (Hospitalization, Other)
  Sender: FDA-Public Use
  Company Number: PHEH2010US01021

PATIENT
  Sex: Female

DRUGS (14)
  1. RECLAST [Suspect]
     Dosage: 5 MG
     Route: 042
     Dates: start: 20090109
  2. DIGOXIN [Concomitant]
     Dosage: UNK, UNK
  3. DILTIAZEM [Concomitant]
     Dosage: UNK, UNK
  4. DIURETICS [Concomitant]
  5. LOSARTAN [Concomitant]
  6. VALSARTAN [Concomitant]
  7. NESIRITIDE [Concomitant]
  8. POTASSIUM CHLORIDE [Concomitant]
  9. DETROL [Concomitant]
     Dosage: 4 MG, UNK
  10. DIOVAN [Concomitant]
     Dosage: 80 MG, UNK
  11. FUROSEMIDE [Concomitant]
     Dosage: 20 MG IN A DAY
  12. LABETALOL HCL [Concomitant]
     Dosage: 800 MG, BID
  13. OMEPRAZOLE [Concomitant]
     Dosage: 20 MG, UNK
  14. ZOCOR [Concomitant]
     Dosage: 20 MG, UNK

REACTIONS (14)
  - ASTHENIA [None]
  - ATRIAL FIBRILLATION [None]
  - DYSPNOEA [None]
  - EJECTION FRACTION DECREASED [None]
  - GENERAL PHYSICAL HEALTH DETERIORATION [None]
  - HEART RATE IRREGULAR [None]
  - LEFT VENTRICULAR DYSFUNCTION [None]
  - MITRAL VALVE INCOMPETENCE [None]
  - PALPITATIONS [None]
  - PULMONARY HYPERTENSION [None]
  - PULMONARY VALVE INCOMPETENCE [None]
  - RIGHT VENTRICULAR SYSTOLIC PRESSURE INCREASED [None]
  - TRICUSPID VALVE INCOMPETENCE [None]
  - VENTRICULAR EXTRASYSTOLES [None]
